FAERS Safety Report 9594505 (Version 1)
Quarter: 2013Q4

REPORT INFORMATION
  Report Type: Spontaneous
  Country: US (occurrence: US)
  Receive Date: 20131004
  Receipt Date: 20131004
  Transmission Date: 20140711
  Serious: No
  Sender: FDA-Public Use
  Company Number: US-GLAXOSMITHKLINE-A1014187A

PATIENT
  Age: 50 Year
  Sex: Female

DRUGS (3)
  1. IMITREX [Suspect]
     Indication: MIGRAINE
     Dosage: 1SPR AS REQUIRED
     Route: 045
     Dates: start: 2000
  2. IMITREX [Suspect]
     Indication: MIGRAINE
     Dosage: 6MG AS REQUIRED
     Route: 058
     Dates: start: 2000
  3. OTHER MEDICATIONS [Concomitant]

REACTIONS (8)
  - Headache [Recovering/Resolving]
  - Overdose [Unknown]
  - Expired drug administered [Unknown]
  - Stress [Unknown]
  - Medication overuse headache [Unknown]
  - Malaise [Unknown]
  - Neck pain [Unknown]
  - Injection site pain [Unknown]
